FAERS Safety Report 4473773-X (Version None)
Quarter: 2004Q3

REPORT INFORMATION
  Report Type: 
  Country: None (occurrence: None)
  Receive Date: 20040909
  Receipt Date: 20040519
  Transmission Date: 20050211
  Serious: No
  Sender: FDA-Public Use
  Company Number: A03200401670

PATIENT
  Sex: Male

DRUGS (2)
  1. ELOXATIN [Suspect]
     Indication: COLON CANCER
     Dosage: 200 MG Q2W - INTRAVENOUS NOS
     Route: 042
     Dates: start: 20040101, end: 20040101
  2. ELOXATIN [Suspect]
     Indication: METASTASES TO LIVER
     Dosage: 200 MG Q2W - INTRAVENOUS NOS
     Route: 042
     Dates: start: 20040101, end: 20040101

REACTIONS (2)
  - PROCTALGIA [None]
  - SCROTAL PAIN [None]
